FAERS Safety Report 25906753 (Version 1)
Quarter: 2025Q4

REPORT INFORMATION
  Report Type: Spontaneous
  Country: EU (occurrence: EU)
  Receive Date: 20251010
  Receipt Date: 20251010
  Transmission Date: 20260118
  Serious: Yes (Hospitalization)
  Sender: PFIZER
  Company Number: None

PATIENT
  Age: 89 Year
  Sex: Female
  Weight: 61.5 kg

DRUGS (9)
  1. SPIRONOLACTONE [Interacting]
     Active Substance: SPIRONOLACTONE
     Indication: Cardiac failure
     Dosage: 25 MG, 1X/DAY (EVERY 24H)
     Route: 048
     Dates: start: 20250905, end: 20250926
  2. FUROSEMIDE [Interacting]
     Active Substance: FUROSEMIDE
     Indication: Cardiac failure
     Dosage: 20 MG, 1X/DAY (EVERY 24H)
     Route: 048
     Dates: start: 20230724, end: 20250904
  3. FUROSEMIDE [Interacting]
     Active Substance: FUROSEMIDE
     Dosage: 80 MG, 1X/DAY
     Route: 048
     Dates: start: 20250905, end: 20250915
  4. FUROSEMIDE [Interacting]
     Active Substance: FUROSEMIDE
     Dosage: 40 MG, 1X/DAY (EVERY 24H)
     Route: 048
     Dates: start: 20250916, end: 20250922
  5. FUROSEMIDE [Interacting]
     Active Substance: FUROSEMIDE
     Dosage: 20 MG, 1X/DAY (EVERY 24H)
     Route: 048
     Dates: start: 20250923
  6. DAPAGLIFLOZIN [Concomitant]
     Active Substance: DAPAGLIFLOZIN
     Indication: Diabetes mellitus
     Dosage: 10 MG, 1X/DAY, (EVERY 24H)
     Route: 048
     Dates: start: 20240311
  7. ENALAPRIL [Concomitant]
     Active Substance: ENALAPRIL
     Indication: Hypertension
     Dosage: 5 MG, 1X/DAY (EVERY 24H)
     Route: 048
     Dates: start: 20230605
  8. BISOPROLOL [Concomitant]
     Active Substance: BISOPROLOL
     Dosage: 5 MG, 1X/DAY (EVER 24H)
     Route: 048
     Dates: start: 20230605
  9. SINTROM [Concomitant]
     Active Substance: ACENOCOUMAROL
     Indication: Atrial fibrillation
     Dosage: UNK

REACTIONS (3)
  - Acute kidney injury [Recovering/Resolving]
  - Hypokalaemia [Recovering/Resolving]
  - Drug interaction [Unknown]

NARRATIVE: CASE EVENT DATE: 20250926
